FAERS Safety Report 6505425-6 (Version None)
Quarter: 2009Q4

REPORT INFORMATION
  Report Type: 
  Country: None (occurrence: None)
  Receive Date: 20091218
  Receipt Date: 20091209
  Transmission Date: 20100525
  Serious: Yes (Other)
  Sender: FDA-Public Use
  Company Number: US-BAYER-200942353NA

PATIENT
  Age: 44 Year
  Sex: Female

DRUGS (1)
  1. MIRENA [Suspect]
     Indication: CONTRACEPTION
     Dosage: CONTINUOUS
     Route: 015
     Dates: start: 20091208

REACTIONS (9)
  - ABDOMINAL PAIN [None]
  - BACK PAIN [None]
  - COMPLICATION OF DEVICE INSERTION [None]
  - CONVULSION [None]
  - FAECAL INCONTINENCE [None]
  - HEADACHE [None]
  - MUSCLE TWITCHING [None]
  - PROCEDURAL PAIN [None]
  - RESPIRATORY ARREST [None]
